FAERS Safety Report 14122717 (Version 1)
Quarter: 2017Q4

REPORT INFORMATION
  Report Type: Spontaneous
  Country: US (occurrence: US)
  Receive Date: 20171025
  Receipt Date: 20171025
  Transmission Date: 20180321
  Serious: Yes (Hospitalization)
  Sender: FDA-Public Use
  Company Number: US-LEO PHARMA-305063

PATIENT
  Age: 66 Year
  Sex: Female

DRUGS (1)
  1. PROTOPIC [Suspect]
     Active Substance: TACROLIMUS
     Indication: PYODERMA
     Route: 061

REACTIONS (6)
  - Product use in unapproved indication [Unknown]
  - Necrotising soft tissue infection [Not Recovered/Not Resolved]
  - Pain in extremity [Not Recovered/Not Resolved]
  - Wound [Not Recovered/Not Resolved]
  - Bacterial infection [Not Recovered/Not Resolved]
  - Vomiting [Not Recovered/Not Resolved]
